FAERS Safety Report 18842824 (Version 2)
Quarter: 2021Q1

REPORT INFORMATION
  Report Type: Spontaneous
  Country: CZ (occurrence: CZ)
  Receive Date: 20210203
  Receipt Date: 20210304
  Transmission Date: 20210419
  Serious: Yes (Hospitalization, Other)
  Sender: FDA-Public Use
  Company Number: CZ-TEVA-2021-CZ-1877008

PATIENT
  Age: 40 Year
  Sex: Male

DRUGS (20)
  1. QUETIAPINE. [Suspect]
     Active Substance: QUETIAPINE
     Indication: SCHIZOPHRENIA
     Dosage: 200 MILLIGRAM DAILY; 200 MG INCREASED TO 600 MG IN 2007, LATED RISCONTINUED
     Route: 065
  2. AGOMELATINE [Concomitant]
     Active Substance: AGOMELATINE
     Indication: SCHIZOPHRENIA
     Dosage: 50 MG
     Route: 065
  3. LEVOTHYROXINE. [Concomitant]
     Active Substance: LEVOTHYROXINE
     Indication: HYPOTHYROIDISM
     Dosage: 75 MCG
     Route: 065
  4. METFORMIN [Concomitant]
     Active Substance: METFORMIN HYDROCHLORIDE
     Indication: TYPE 2 DIABETES MELLITUS
     Dosage: 2000 MG
     Route: 065
  5. INSULIN DEGLUDEC/LIRAGLUTIDE [Concomitant]
     Indication: TYPE 2 DIABETES MELLITUS
     Dosage: 40 UNITS IN THE EVENING
     Route: 065
  6. PERINDOPRIL [Suspect]
     Active Substance: PERINDOPRIL
     Indication: HYPERTENSION
     Dosage: 4 MILLIGRAM DAILY;
     Route: 065
  7. PANTOPRAZOLE [Concomitant]
     Active Substance: PANTOPRAZOLE
     Indication: DRUG THERAPY
     Dosage: 80 MG
     Route: 065
  8. RISPERIDONE. [Suspect]
     Active Substance: RISPERIDONE
     Route: 065
  9. REPAGLINIDE. [Suspect]
     Active Substance: REPAGLINIDE
     Indication: TYPE 2 DIABETES MELLITUS
     Route: 048
     Dates: end: 2017
  10. OLANZAPINE. [Suspect]
     Active Substance: OLANZAPINE
     Route: 065
  11. OLANZAPINE. [Suspect]
     Active Substance: OLANZAPINE
     Dosage: 10 MILLIGRAM DAILY;
     Route: 065
  12. CLONAZEPAM. [Concomitant]
     Active Substance: CLONAZEPAM
     Indication: ANXIETY
     Dosage: 0.5 MG
     Route: 065
  13. FENOFIBRATE. [Concomitant]
     Active Substance: FENOFIBRATE
     Indication: HYPERTRIGLYCERIDAEMIA
     Dosage: 215 MG
     Route: 065
  14. RISPERIDONE. [Suspect]
     Active Substance: RISPERIDONE
     Indication: SCHIZOPHRENIA
     Dosage: FIRST ORALLY, LATER SWITCHED TO LONG?LASTING INJECTION FORM
     Route: 048
     Dates: start: 2004
  15. OLANZAPINE. [Suspect]
     Active Substance: OLANZAPINE
     Indication: SCHIZOPHRENIA
     Dosage: INITIALLY DOSE WAS REDUCED AND LATER, OLANZAPINE WAS DISCONTINUED
     Route: 065
  16. CARIPRAZINE [Concomitant]
     Active Substance: CARIPRAZINE
     Indication: SCHIZOPHRENIA
     Dosage: 4.5 MG
     Route: 065
     Dates: start: 201909
  17. OLANZAPINE. [Suspect]
     Active Substance: OLANZAPINE
     Route: 065
  18. PREGABALIN. [Concomitant]
     Active Substance: PREGABALIN
     Indication: DRUG THERAPY
     Dosage: 600 MG
     Route: 065
  19. BETAXOLOL. [Concomitant]
     Active Substance: BETAXOLOL
     Indication: ESSENTIAL HYPERTENSION
     Dosage: 10 MG
     Route: 065
  20. TESTOSTERONE. [Concomitant]
     Active Substance: TESTOSTERONE
     Indication: DRUG THERAPY
     Dosage: ONCE EVERY 14 DAYS
     Route: 065

REACTIONS (7)
  - Schizophrenia [Recovering/Resolving]
  - Sleep disorder [Recovered/Resolved]
  - Metabolic syndrome [Unknown]
  - Gynaecomastia [Unknown]
  - Hyperprolactinaemia [Unknown]
  - Drug ineffective [Unknown]
  - Pancreatitis acute [Recovered/Resolved]

NARRATIVE: CASE EVENT DATE: 2007
